FAERS Safety Report 8215528-6 (Version None)
Quarter: 2012Q1

REPORT INFORMATION
  Report Type: 
  Country: None (occurrence: None)
  Receive Date: 20120316
  Receipt Date: 20120305
  Transmission Date: 20120608
  Serious: Yes (Hospitalization)
  Sender: FDA-Public Use
  Company Number: JP-JNJFOC-20110906592

PATIENT
  Sex: Female
  Weight: 46 kg

DRUGS (26)
  1. PYRAZINAMIDE [Suspect]
     Indication: TUBERCULOSIS
     Route: 048
     Dates: start: 20110909, end: 20111026
  2. REMICADE [Suspect]
     Indication: PSORIATIC ARTHROPATHY
     Route: 042
     Dates: start: 20110808
  3. REMICADE [Suspect]
     Route: 042
     Dates: start: 20101228
  4. NEOISCOTIN [Suspect]
     Indication: TUBERCULOSIS
     Route: 048
     Dates: start: 20110909
  5. REMICADE [Suspect]
     Indication: PSORIASIS
     Route: 042
     Dates: start: 20110808
  6. REMICADE [Suspect]
     Route: 042
     Dates: start: 20110614
  7. REMICADE [Suspect]
     Route: 042
     Dates: start: 20101116
  8. REMICADE [Suspect]
     Route: 042
     Dates: start: 20110222
  9. REMICADE [Suspect]
     Route: 042
     Dates: start: 20110419
  10. ZITHROMAX [Concomitant]
     Route: 048
     Dates: start: 20110822
  11. LOXOPROFEN SODIUM [Concomitant]
     Route: 048
  12. REMICADE [Suspect]
     Route: 042
     Dates: start: 20101228
  13. REMICADE [Suspect]
     Route: 042
     Dates: start: 20101201
  14. PYRIDOXAL PHOSPHATE [Concomitant]
     Route: 048
  15. REMICADE [Suspect]
     Route: 042
     Dates: start: 20110222
  16. RIFADIN [Suspect]
     Indication: TUBERCULOSIS
     Route: 048
     Dates: start: 20110909
  17. ETHAMBUTOL HYDROCHLORIDE [Suspect]
     Route: 048
     Dates: start: 20111027
  18. REBAMIPIDE [Concomitant]
     Route: 048
  19. REMICADE [Suspect]
     Route: 042
     Dates: start: 20101116
  20. URSO 250 [Concomitant]
     Route: 048
  21. NEOISCOTIN [Suspect]
     Route: 048
     Dates: start: 20101025, end: 20110517
  22. ETHAMBUTOL HYDROCHLORIDE [Suspect]
     Indication: TUBERCULOSIS
     Route: 048
     Dates: start: 20110909, end: 20111026
  23. VOLTAREN [Concomitant]
     Route: 048
     Dates: start: 20110822
  24. REMICADE [Suspect]
     Route: 042
     Dates: start: 20110614
  25. REMICADE [Suspect]
     Route: 042
     Dates: start: 20101201
  26. REMICADE [Suspect]
     Route: 042
     Dates: start: 20110419

REACTIONS (3)
  - PERITONEAL TUBERCULOSIS [None]
  - HEPATIC FUNCTION ABNORMAL [None]
  - ASCITES [None]
